FAERS Safety Report 20675337 (Version 1)
Quarter: 2022Q2

REPORT INFORMATION
  Report Type: Spontaneous
  Country: US (occurrence: None)
  Receive Date: 20220405
  Receipt Date: 20220405
  Transmission Date: 20220720
  Serious: Yes (Hospitalization, Other)
  Sender: FDA-Public Use
  Company Number: 2022A132905

PATIENT
  Age: 41 Year
  Sex: Male

DRUGS (2)
  1. BRILINTA [Suspect]
     Active Substance: TICAGRELOR
     Indication: Acute coronary syndrome
     Route: 048
     Dates: start: 20211218, end: 20220216
  2. BRILINTA [Concomitant]
     Active Substance: TICAGRELOR
     Indication: Acute coronary syndrome
     Route: 048

REACTIONS (4)
  - Urinary incontinence [Recovered/Resolved]
  - Proteinuria [Recovered/Resolved]
  - Blood pressure increased [Recovered/Resolved]
  - Loss of consciousness [Recovered/Resolved]

NARRATIVE: CASE EVENT DATE: 20211227
